FAERS Safety Report 9517184 (Version 1)
Quarter: 2013Q3

REPORT INFORMATION
  Report Type: Spontaneous
  Country: US (occurrence: US)
  Receive Date: 20130911
  Receipt Date: 20130911
  Transmission Date: 20140515
  Serious: No
  Sender: FDA-Public Use
  Company Number: US-009507513-1308USA014682

PATIENT
  Age: 18 Year
  Sex: Female
  Weight: 104.31 kg

DRUGS (1)
  1. IMPLANON [Suspect]
     Indication: CONTRACEPTION
     Dosage: 1 ROD UP TO 3 YEARS
     Route: 058
     Dates: start: 20101018

REACTIONS (10)
  - Device expulsion [Unknown]
  - Pigmentation disorder [Unknown]
  - Movement disorder [Unknown]
  - Device breakage [Unknown]
  - Feeling abnormal [Unknown]
  - Skin discolouration [Unknown]
  - Weight increased [Unknown]
  - Pain in extremity [Unknown]
  - Hypoaesthesia [Unknown]
  - Medical device complication [Not Recovered/Not Resolved]
